FAERS Safety Report 9306881 (Version 1)
Quarter: 2013Q1

REPORT INFORMATION
  Report Type: Spontaneous
  Country: JP (occurrence: None)
  Receive Date: 20130313
  Receipt Date: 20130313
  Transmission Date: 20140127
  Serious: Yes (Death, Life-Threatening)
  Sender: FDA-Public Use
  Company Number: 2012JP000795

PATIENT
  Age: 64 Year
  Sex: Female
  Weight: 44.7 kg

DRUGS (23)
  1. PONATINIB (AP24534) TABLET [Suspect]
     Indication: ACUTE LYMPHOCYTIC LEUKAEMIA
     Dates: start: 20120822, end: 20120824
  2. SODIUM GUALENATE HYDRATE (SODIUM GUALENATE HYDRATE) [Concomitant]
  3. ALDACTONE (SPIRONOLACTONE) [Concomitant]
  4. BAKTAR (SULFAMETHOXAZOLE, TRIMETHOPRIM) [Concomitant]
  5. POSTERISAN F (ESCHERICHIA COLI, HYDROCORTISONE) [Concomitant]
  6. LANSOPRAZOLE (LANSOPRAZOLE) [Concomitant]
  7. ALLOPURINOL [Concomitant]
  8. LENDORMIN (BROTIZOLAM) [Concomitant]
  9. PROPIVERINE HCL (PROPIVERINE HYDROCHLORIDE) [Concomitant]
  10. BENET (RISEDRONATE SODIUM) [Concomitant]
  11. METHYCOBAL (MECOBALAMIN) [Concomitant]
  12. FLUCONAZOLE (FLUCONAZOLE) [Concomitant]
  13. CYMBALTA (DULOXETINE HYDROCHLORIDE) [Concomitant]
  14. LEXOTAN (BROMAZEPAM) [Concomitant]
  15. LANIRAPID (METILDIGOXIN) [Concomitant]
  16. PANTETHINE (PANTETHINE) [Concomitant]
  17. MAGNESIUM OXIDE (MAGNESIUM OXIDE) [Concomitant]
  18. LASIX (FUROSEMIDE) [Concomitant]
  19. MIRTAZAPINE (MIRTAZAPINE) [Concomitant]
  20. BIO-THREE COMBINATION POWDER [Concomitant]
  21. LOXONIN (LOXOPROFEN SODIUM) [Concomitant]
  22. ASPARA K (POTASSIUM ASPARTATE) [Concomitant]
  23. CRAVIT (LEVOFLOXACIN) [Concomitant]

REACTIONS (28)
  - Hepatic failure [None]
  - Renal failure acute [None]
  - Disseminated intravascular coagulation [None]
  - Cold sweat [None]
  - Encephalopathy [None]
  - Pleural effusion [None]
  - Continuous haemodiafiltration [None]
  - Metabolic acidosis [None]
  - Hypoventilation [None]
  - Blood pressure immeasurable [None]
  - Haemoglobin decreased [None]
  - Localised intraabdominal fluid collection [None]
  - Cardiomegaly [None]
  - Generalised oedema [None]
  - Pupils unequal [None]
  - Blister [None]
  - Haemorrhage subcutaneous [None]
  - No therapeutic response [None]
  - Cardio-respiratory arrest [None]
  - Hepatitis fulminant [None]
  - Catheter site haemorrhage [None]
  - Mouth haemorrhage [None]
  - Gastrointestinal haemorrhage [None]
  - Oxygen saturation decreased [None]
  - Hepatic haemorrhage [None]
  - Ischaemic hepatitis [None]
  - Hepatic steatosis [None]
  - Hepatotoxicity [None]
